FAERS Safety Report 12607269 (Version 1)
Quarter: 2016Q3

REPORT INFORMATION
  Report Type: Spontaneous
  Country: US (occurrence: US)
  Receive Date: 20160729
  Receipt Date: 20160729
  Transmission Date: 20161109
  Serious: No
  Sender: FDA-Public Use
  Company Number: US-ABBVIE-16P-163-1602321-00

PATIENT
  Sex: Female

DRUGS (2)
  1. NIASPAN [Suspect]
     Active Substance: NIACIN
     Indication: HYPERLIPIDAEMIA
     Route: 048
  2. TRICOR [Suspect]
     Active Substance: FENOFIBRATE
     Indication: PRODUCT USED FOR UNKNOWN INDICATION
     Route: 048

REACTIONS (1)
  - Chest pain [Unknown]
